FAERS Safety Report 6476494-7 (Version None)
Quarter: 2009Q4

REPORT INFORMATION
  Report Type: 
  Country: None (occurrence: None)
  Receive Date: 20091207
  Receipt Date: 20091127
  Transmission Date: 20100525
  Serious: Yes (Hospitalization, Other)
  Sender: FDA-Public Use
  Company Number: DE-JNJFOC-20090604273

PATIENT
  Sex: Female
  Weight: 72 kg

DRUGS (4)
  1. STELARA [Suspect]
     Route: 058
  2. STELARA [Suspect]
     Indication: PSORIASIS
     Route: 058
  3. FUROSEMIDE [Concomitant]
     Indication: HYPERTENSION
     Route: 048
  4. ATACAND [Concomitant]
     Indication: HYPERTENSION
     Route: 048

REACTIONS (7)
  - BLOOD TEST ABNORMAL [None]
  - HAEMOPHILUS INFECTION [None]
  - INTERSTITIAL LUNG DISEASE [None]
  - POLYARTHRITIS [None]
  - PULMONARY FIBROSIS [None]
  - SYNOVITIS [None]
  - TENOSYNOVITIS [None]
